FAERS Safety Report 7840034 (Version 5)
Quarter: 2015Q4

REPORT INFORMATION
  Report Type: Spontaneous
  Country: US (occurrence: US)
  Receive Date: 20110303
  Receipt Date: 20151209
  Transmission Date: 20160305
  Serious: Yes (Hospitalization)
  Sender: FDA-Public Use
  Company Number: US-BAYER-2011-019344

PATIENT
  Age: 24 Year
  Sex: Female
  Weight: 95.24 kg

DRUGS (18)
  1. BIOTIN [Concomitant]
     Active Substance: BIOTIN
     Dosage: DAILY
  2. ADVIL [Concomitant]
     Active Substance: IBUPROFEN
     Indication: HEADACHE
     Dosage: UNK UNK, PRN
  3. YAZ [Suspect]
     Active Substance: DROSPIRENONE\ETHINYL ESTRADIOL
     Indication: CONTRACEPTION
  4. GARLIC. [Concomitant]
     Active Substance: GARLIC
     Dosage: DAILY
  5. IRON SUPPLEMENT [Concomitant]
     Active Substance: IRON
  6. TYLENOL WITH CODEINE [Concomitant]
     Active Substance: ACETAMINOPHEN\CODEINE PHOSPHATE
  7. ZOLOFT [Concomitant]
     Active Substance: SERTRALINE HYDROCHLORIDE
  8. ECHINACEA [Concomitant]
     Active Substance: ECHINACEA, UNSPECIFIED
     Dosage: DAILY
  9. ATIVAN [Concomitant]
     Active Substance: LORAZEPAM
  10. CRESTOR [Concomitant]
     Active Substance: ROSUVASTATIN CALCIUM
  11. FIORICET [Concomitant]
     Active Substance: ACETAMINOPHEN\BUTALBITAL\CAFFEINE
  12. OCELLA [Suspect]
     Active Substance: DROSPIRENONE\ETHINYL ESTRADIOL
     Indication: POLYCYSTIC OVARIES
     Dosage: UNK
     Route: 048
     Dates: start: 200903, end: 20090531
  13. STATIN [Concomitant]
     Active Substance: UNSPECIFIED INGREDIENT
  14. ZOCOR [Concomitant]
     Active Substance: SIMVASTATIN
  15. LISINOPRIL. [Concomitant]
     Active Substance: LISINOPRIL
  16. REPARIL [Concomitant]
  17. YASMIN [Suspect]
     Active Substance: DROSPIRENONE\ETHINYL ESTRADIOL
     Indication: POLYCYSTIC OVARIES
     Dosage: UNK
     Dates: start: 200903, end: 20090531
  18. METFORMIN [Concomitant]
     Active Substance: METFORMIN HYDROCHLORIDE
     Indication: POLYCYSTIC OVARIES
     Dosage: UNK
     Dates: start: 2011

REACTIONS (5)
  - Depression [None]
  - Cerebrovascular accident [Recovering/Resolving]
  - Learning disorder [None]
  - Injury [Recovering/Resolving]
  - Pain [Recovering/Resolving]

NARRATIVE: CASE EVENT DATE: 20090531
